FAERS Safety Report 9419961 (Version 2)
Quarter: 2013Q3

REPORT INFORMATION
  Report Type: Spontaneous
  Country: US (occurrence: US)
  Receive Date: 20130725
  Receipt Date: 20130814
  Transmission Date: 20140515
  Serious: Yes (Death, Hospitalization)
  Sender: FDA-Public Use
  Company Number: US-GILEAD-2013-0080080

PATIENT
  Sex: Female

DRUGS (1)
  1. LETAIRIS [Suspect]
     Indication: PORTOPULMONARY HYPERTENSION
     Route: 048
     Dates: start: 20110715

REACTIONS (1)
  - Right ventricular failure [Fatal]
